FAERS Safety Report 6721527-3 (Version None)
Quarter: 2010Q2

REPORT INFORMATION
  Report Type: 
  Country: None (occurrence: None)
  Receive Date: 20100512
  Receipt Date: 20100510
  Transmission Date: 20101027
  Serious: Yes (Hospitalization)
  Sender: FDA-Public Use
  Company Number: GB-ELI_LILLY_AND_COMPANY-GB200912002185

PATIENT
  Sex: Male
  Weight: 65 kg

DRUGS (14)
  1. PEMETREXED [Suspect]
     Indication: NON-SMALL CELL LUNG CANCER
     Dosage: 687.5 MG, UNK
     Route: 042
     Dates: start: 20091117, end: 20091208
  2. CISPLATIN [Suspect]
     Indication: NON-SMALL CELL LUNG CANCER
     Dosage: 68 MG, UNK
     Route: 042
     Dates: start: 20091117, end: 20091208
  3. OMEPRAZOLE [Concomitant]
     Indication: PROPHYLAXIS AGAINST GASTROINTESTINAL ULCER
     Dates: start: 20090601
  4. DICLOFENAC [Concomitant]
     Indication: ANALGESIC THERAPY
     Dosage: 75 MG, UNK
     Dates: start: 20060101
  5. ACETAMINOPHEN AND CODEINE PHOSPHATE [Concomitant]
     Indication: ANALGESIC THERAPY
     Dates: start: 20090501
  6. GLYCERIN SUPPOSITORIES USP 27 [Concomitant]
     Indication: CONSTIPATION
     Dates: start: 20091003
  7. MOVICOL [Concomitant]
     Indication: CONSTIPATION
     Dates: start: 20091003
  8. FOLIC ACID [Concomitant]
     Indication: PROPHYLAXIS
     Dates: start: 20091007
  9. VITAMIN B-12 [Concomitant]
     Indication: PROPHYLAXIS
     Dates: start: 20091007
  10. MST [Concomitant]
     Indication: ANALGESIC THERAPY
     Dates: start: 20091003
  11. CLEXANE [Concomitant]
     Indication: ANTICOAGULANT THERAPY
     Dosage: 80 MG, UNK
     Route: 058
     Dates: start: 20091016
  12. MAGNESIUM SULPHATE                 /00167401/ [Concomitant]
     Dosage: 4 MMOL IN 1000 MLS OF NORMAL SALINE UNK
  13. ONDANSETRON [Concomitant]
     Dosage: 8 MG, UNK
  14. DEXAMETHASONE [Concomitant]
     Dosage: 8 MG, UNK

REACTIONS (1)
  - ABDOMINAL PAIN [None]
